FAERS Safety Report 4612242-0 (Version None)
Quarter: 2005Q2

REPORT INFORMATION
  Report Type: 
  Country: None (occurrence: None)
  Receive Date: 20050308
  Receipt Date: 20041122
  Transmission Date: 20051028
  Serious: Yes (Other)
  Sender: FDA-Public Use
  Company Number: 2004UW23916

PATIENT
  Age: 74 Year
  Sex: Female
  Weight: 51.709 kg

DRUGS (5)
  1. CRESTOR [Suspect]
     Indication: HYPERCHOLESTEROLAEMIA
     Dosage: 10 MG PO
     Route: 048
     Dates: start: 20040101
  2. NOVASC     /DEN/ [Concomitant]
  3. FOSAMAX [Concomitant]
  4. OSCAL [Concomitant]
  5. VITAMINS [Concomitant]

REACTIONS (3)
  - DRY MOUTH [None]
  - DRY THROAT [None]
  - THROAT IRRITATION [None]
